FAERS Safety Report 9110660 (Version 1)
Quarter: 2013Q1

REPORT INFORMATION
  Report Type: Spontaneous
  Country: US (occurrence: US)
  Receive Date: 20130219
  Receipt Date: 20130219
  Transmission Date: 20140127
  Serious: No
  Sender: FDA-Public Use
  Company Number: US-BRISTOL-MYERS SQUIBB COMPANY-16968125

PATIENT
  Age: 52 Year
  Sex: Female
  Weight: 97.96 kg

DRUGS (7)
  1. ABATACEPT SUBQ INJECTION 125MG/ML [Suspect]
     Indication: RHEUMATOID ARTHRITIS
     Dosage: LAST INJECTION:  12SEP2012,PRE-FILLED SYRINGE  FOR MORE THAN A YEAR
     Route: 058
  2. ADVAIR [Concomitant]
  3. PREVACID [Concomitant]
  4. SYNTHROID [Concomitant]
  5. PLAQUENIL [Concomitant]
  6. CELEBREX [Concomitant]
  7. FLUOXETINE [Concomitant]

REACTIONS (1)
  - Hot flush [Not Recovered/Not Resolved]
